FAERS Safety Report 6681139-7 (Version None)
Quarter: 2010Q2

REPORT INFORMATION
  Report Type: 
  Country: None (occurrence: None)
  Receive Date: 20100414
  Receipt Date: 20100402
  Transmission Date: 20101027
  Serious: Yes (Hospitalization, Other)
  Sender: FDA-Public Use
  Company Number: US-ROCHE-696427

PATIENT

DRUGS (2)
  1. BEVACIZUMAB [Suspect]
     Dosage: OVER 30-90 MINS ON DAYS 1 AND 15.
     Route: 042
     Dates: start: 20090714
  2. FUROSEMIDE [Suspect]
     Indication: DRUG USE FOR UNKNOWN INDICATION
     Route: 065

REACTIONS (3)
  - BLOOD CREATININE INCREASED [None]
  - GLOMERULAR FILTRATION RATE DECREASED [None]
  - LEFT VENTRICULAR DYSFUNCTION [None]
